FAERS Safety Report 21088272 (Version 1)
Quarter: 2022Q3

REPORT INFORMATION
  Report Type: Spontaneous
  Country: ES (occurrence: ES)
  Receive Date: 20220715
  Receipt Date: 20220715
  Transmission Date: 20221026
  Serious: Yes (Death, Hospitalization, Other)
  Sender: FDA-Public Use
  Company Number: ES-CELGENE-ESP-20190802693

PATIENT
  Age: 53 Year
  Sex: Female
  Weight: 62.5 kg

DRUGS (39)
  1. GEMCITABINE [Suspect]
     Active Substance: GEMCITABINE
     Indication: Pancreatic carcinoma metastatic
     Dosage: 1000 MILLIGRAM/SQ. METER, QD
     Route: 065
     Dates: start: 20190801, end: 20190801
  2. GEMCITABINE [Suspect]
     Active Substance: GEMCITABINE
     Dosage: 1000 MILLIGRAM/SQ. METER, QD
     Route: 065
     Dates: start: 20190909, end: 20190909
  3. GEMCITABINE [Suspect]
     Active Substance: GEMCITABINE
     Dosage: 1000 MILLIGRAM/SQ. METER, QD
     Route: 065
     Dates: start: 20190923, end: 20190923
  4. GEMCITABINE [Suspect]
     Active Substance: GEMCITABINE
     Dosage: 1000 MILLIGRAM/SQ. METER, QD
     Route: 065
     Dates: start: 20191021, end: 20191021
  5. GEMCITABINE [Suspect]
     Active Substance: GEMCITABINE
     Dosage: 1000 MILLIGRAM/SQ. METER, QD
     Route: 065
     Dates: start: 20190916, end: 20190916
  6. GEMCITABINE [Suspect]
     Active Substance: GEMCITABINE
     Dosage: 1000 MILLIGRAM/SQ. METER, QD
     Route: 065
     Dates: start: 20190715, end: 20190715
  7. GEMCITABINE [Suspect]
     Active Substance: GEMCITABINE
     Dosage: 1000 MILLIGRAM/SQ. METER, QD
     Route: 065
     Dates: start: 20190814, end: 20190814
  8. GEMCITABINE [Suspect]
     Active Substance: GEMCITABINE
     Dosage: 1000 MILLIGRAM/SQ. METER, QD
     Route: 065
     Dates: start: 20191007, end: 20191007
  9. GEMCITABINE [Suspect]
     Active Substance: GEMCITABINE
     Dosage: 600 MILLIGRAM/SQ. METER
     Route: 065
     Dates: start: 20191118
  10. GEMCITABINE [Suspect]
     Active Substance: GEMCITABINE
     Dosage: 1000 MILLIGRAM/SQ. METER, QD
     Route: 065
     Dates: start: 20191014, end: 20191014
  11. GEMCITABINE [Suspect]
     Active Substance: GEMCITABINE
     Dosage: 1000 MILLIGRAM/SQ. METER, QD
     Route: 065
     Dates: start: 20191104, end: 20191104
  12. GEMCITABINE [Suspect]
     Active Substance: GEMCITABINE
     Dosage: 1000 MILLIGRAM/SQ. METER, QD
     Route: 065
     Dates: start: 20191021, end: 20191021
  13. GEMCITABINE [Suspect]
     Active Substance: GEMCITABINE
     Dosage: 800 MILLIGRAM/SQ. METER, QD
     Route: 065
     Dates: start: 20191111, end: 20191111
  14. ABRAXANE [Suspect]
     Active Substance: PACLITAXEL
     Indication: Pancreatic carcinoma metastatic
     Dosage: 75 MILLIGRAM/SQ. METER, QD
     Route: 042
     Dates: start: 20191118, end: 20191118
  15. ABRAXANE [Suspect]
     Active Substance: PACLITAXEL
     Dosage: 125 MILLIGRAM/SQ. METER, BID
     Route: 065
     Dates: start: 20191007, end: 20191009
  16. ABRAXANE [Suspect]
     Active Substance: PACLITAXEL
     Dosage: 125 MILLIGRAM/SQ. METER, QD
     Route: 042
     Dates: start: 20191104, end: 20191104
  17. ABRAXANE [Suspect]
     Active Substance: PACLITAXEL
     Dosage: 125 MILLIGRAM/SQ. METER, QD
     Route: 042
     Dates: start: 20190909, end: 20190909
  18. ABRAXANE [Suspect]
     Active Substance: PACLITAXEL
     Dosage: 125 MILLIGRAM/SQ. METER
     Route: 065
     Dates: start: 20190723
  19. ABRAXANE [Suspect]
     Active Substance: PACLITAXEL
     Dosage: 125 MILLIGRAM/SQ. METER, QD
     Route: 042
     Dates: start: 20190621, end: 20190621
  20. ABRAXANE [Suspect]
     Active Substance: PACLITAXEL
     Dosage: 125 MILLIGRAM/SQ. METER, QD
     Route: 042
     Dates: start: 20190916, end: 20190916
  21. ABRAXANE [Suspect]
     Active Substance: PACLITAXEL
     Dosage: 125 MILLIGRAM/SQ. METER, QD
     Route: 042
     Dates: start: 20191014, end: 20191014
  22. ABRAXANE [Suspect]
     Active Substance: PACLITAXEL
     Dosage: 125 MILLIGRAM/SQ. METER, QD
     Route: 065
     Dates: start: 20190715, end: 20190715
  23. ABRAXANE [Suspect]
     Active Substance: PACLITAXEL
     Dosage: 125 MILLIGRAM/SQ. METER, QD
     Route: 042
     Dates: start: 20190923, end: 20190923
  24. ABRAXANE [Suspect]
     Active Substance: PACLITAXEL
     Dosage: 125 MILLIGRAM/SQ. METER, QD
     Route: 065
     Dates: start: 20190801, end: 20190801
  25. ABRAXANE [Suspect]
     Active Substance: PACLITAXEL
     Dosage: 100 MILLIGRAM/SQ. METER, QD
     Route: 042
     Dates: start: 20191111, end: 20191111
  26. ABRAXANE [Suspect]
     Active Substance: PACLITAXEL
     Dosage: 125 MILLIGRAM/SQ. METER, QD
     Route: 065
     Dates: start: 20190814, end: 20190814
  27. ABRAXANE [Suspect]
     Active Substance: PACLITAXEL
     Dosage: 125 MILLIGRAM/SQ. METER
     Route: 065
     Dates: start: 20191104
  28. ABRAXANE [Suspect]
     Active Substance: PACLITAXEL
     Dosage: 125 MILLIGRAM/SQ. METER, QD
     Route: 042
     Dates: start: 20191021, end: 20191021
  29. ABRAXANE [Suspect]
     Active Substance: PACLITAXEL
     Dosage: 125 MILLIGRAM/SQ. METER, QD
     Route: 065
     Dates: start: 20190909, end: 20190909
  30. ABRAXANE [Suspect]
     Active Substance: PACLITAXEL
     Dosage: 125 MILLIGRAM/SQ. METER, QD
     Route: 042
     Dates: start: 20191007, end: 20191007
  31. ABRAXANE [Suspect]
     Active Substance: PACLITAXEL
     Dosage: 75 MILLIGRAM/SQ. METER
     Route: 065
  32. OLECLUMAB [Suspect]
     Active Substance: OLECLUMAB
     Indication: Pancreatic carcinoma metastatic
     Dosage: 3000 MILLIGRAM, QD
     Route: 042
     Dates: start: 20190814, end: 20190814
  33. OLECLUMAB [Suspect]
     Active Substance: OLECLUMAB
     Dosage: 3000 MILLIGRAM/SQ. METER, QD
     Route: 042
     Dates: start: 20190715, end: 20190715
  34. OLECLUMAB [Suspect]
     Active Substance: OLECLUMAB
     Dosage: 3000 MILLIGRAM/SQ. METER, QD
     Route: 042
     Dates: start: 20191104, end: 20191104
  35. OLECLUMAB [Suspect]
     Active Substance: OLECLUMAB
     Dosage: 3000 MILLIGRAM/SQ. METER, QD
     Route: 042
     Dates: start: 20190909, end: 20190909
  36. OLECLUMAB [Suspect]
     Active Substance: OLECLUMAB
     Dosage: 3000 MILLIGRAM/SQ. METER, QD
     Route: 042
     Dates: start: 20190801, end: 20190801
  37. OLECLUMAB [Suspect]
     Active Substance: OLECLUMAB
     Dosage: 3000 MILLIGRAM/SQ. METER, QD
     Route: 042
     Dates: start: 20191007, end: 20191007
  38. Dexam [Concomitant]
     Indication: Chemotherapy side effect prophylaxis
     Dosage: 4 MILLIGRAM
     Route: 042
     Dates: start: 20190715, end: 20200226
  39. Aceta [Concomitant]
     Indication: Pain prophylaxis
     Dosage: 1 GRAM
     Route: 048
     Dates: start: 2019

REACTIONS (2)
  - Malignant neoplasm progression [Fatal]
  - Gastrointestinal haemorrhage [Recovered/Resolved]

NARRATIVE: CASE EVENT DATE: 20190721
